FAERS Safety Report 17499508 (Version 1)
Quarter: 2020Q1

REPORT INFORMATION
  Report Type: Spontaneous
  Country: US (occurrence: US)
  Receive Date: 20200304
  Receipt Date: 20200304
  Transmission Date: 20200409
  Serious: No
  Sender: FDA-Public Use
  Company Number: US-PTC THERAPEUTICS, INC.-US-2019PTC001437

PATIENT
  Sex: Male

DRUGS (1)
  1. EMFLAZA [Suspect]
     Active Substance: DEFLAZACORT
     Indication: DUCHENNE MUSCULAR DYSTROPHY
     Dosage: 30 MG, QD
     Route: 048
     Dates: start: 20170615

REACTIONS (6)
  - Chest pain [Unknown]
  - Sleep apnoea syndrome [Unknown]
  - Hypotrichosis [Unknown]
  - Delayed puberty [Unknown]
  - Erythema [Unknown]
  - Respiratory muscle weakness [Unknown]
